FAERS Safety Report 9349830 (Version 1)
Quarter: 2013Q2

REPORT INFORMATION
  Report Type: Spontaneous
  Country: TR (occurrence: TR)
  Receive Date: 20130614
  Receipt Date: 20130614
  Transmission Date: 20140414
  Serious: Yes (Other)
  Sender: FDA-Public Use
  Company Number: TR-ROCHE-1235063

PATIENT
  Age: 45 Year
  Sex: Female

DRUGS (1)
  1. BEVACIZUMAB [Suspect]
     Indication: DIABETIC RETINAL OEDEMA
     Dosage: 1.25 MG/0.05 ML
     Route: 050

REACTIONS (2)
  - Vitreous adhesions [Recovered/Resolved]
  - Diabetic retinal oedema [Recovered/Resolved]
